FAERS Safety Report 9774948 (Version 1)
Quarter: 2013Q4

REPORT INFORMATION
  Report Type: Spontaneous
  Country: JP (occurrence: JP)
  Receive Date: 20131220
  Receipt Date: 20131220
  Transmission Date: 20140711
  Serious: Yes (Other)
  Sender: FDA-Public Use
  Company Number: JP-ASTRAZENECA-2013SE90963

PATIENT
  Age: 40 Year
  Sex: Female

DRUGS (4)
  1. XYLOCAINE [Suspect]
     Indication: EPIDURAL ANAESTHESIA
     Route: 008
  2. MARCAIN SPINAL [Suspect]
     Indication: SPINAL ANAESTHESIA
     Route: 029
  3. ANAPEINE [Suspect]
     Indication: POSTOPERATIVE ANALGESIA
     Dosage: 8MG/HR
     Route: 008
  4. FENTANYL [Concomitant]
     Indication: SPINAL ANAESTHESIA
     Route: 024

REACTIONS (3)
  - Diplegia [Recovering/Resolving]
  - Urinary retention [Recovering/Resolving]
  - Headache [Recovering/Resolving]
